FAERS Safety Report 4801491-4 (Version None)
Quarter: 2005Q4

REPORT INFORMATION
  Report Type: 
  Country: None (occurrence: None)
  Receive Date: 20051018
  Receipt Date: 20051007
  Transmission Date: 20060501
  Serious: Yes (Hospitalization)
  Sender: FDA-Public Use
  Company Number: SE-JNJFOC-20050900859

PATIENT
  Age: 61 Year
  Sex: Male

DRUGS (7)
  1. REMICADE [Suspect]
     Indication: CROHN'S DISEASE
     Route: 042
  2. IMUREL [Concomitant]
     Route: 065
  3. ENALAPRIL ACTAVIS [Concomitant]
     Route: 065
  4. SALURES [Concomitant]
     Route: 065
  5. BETAPRED [Concomitant]
     Route: 065
  6. ALFADIL [Concomitant]
     Route: 065
  7. MYCOSTATIN [Concomitant]
     Route: 065

REACTIONS (5)
  - ATRIAL FIBRILLATION [None]
  - BLOOD CORTICOTROPHIN ABNORMAL [None]
  - HYPOKALAEMIA [None]
  - KLEBSIELLA SEPSIS [None]
  - PSEUDOPOLYPOSIS [None]
